FAERS Safety Report 9760120 (Version 1)
Quarter: 2013Q4

REPORT INFORMATION
  Report Type: Spontaneous
  Country: FR (occurrence: None)
  Receive Date: 20131212
  Receipt Date: 20131212
  Transmission Date: 20140711
  Serious: Yes (Life-Threatening, Hospitalization)
  Sender: FDA-Public Use
  Company Number: 2058109

PATIENT
  Age: 45 Year
  Sex: Female
  Weight: 54 kg

DRUGS (7)
  1. CARBOPLATIN [Suspect]
     Dates: start: 20130813
  2. PACLITAXEL [Suspect]
     Dates: start: 20130813
  3. APREPITANT [Suspect]
     Indication: PRODUCT USED FOR UNKNOWN INDICATION
     Dosage: CYCLICAL
     Route: 048
     Dates: start: 20130313
  4. DEXCHLORPHENIRAMINE MALEATE [Suspect]
     Indication: PRODUCT USED FOR UNKNOWN INDICATION
     Route: 042
     Dates: start: 20130313
  5. METHYLPREDNISOLONE SODIUM SUCCINATE [Suspect]
     Dosage: 1 WEEK
     Dates: start: 20130813, end: 20130813
  6. RANITIDINE HYDROCHLORIDE [Suspect]
     Dosage: 1 WEEK (NOT OTHERWISE SPECIFIED)
     Route: 042
     Dates: start: 20130813, end: 20130813
  7. ONDANSETRON [Suspect]
     Dates: start: 20130813

REACTIONS (3)
  - Pruritus generalised [None]
  - Pharyngeal disorder [None]
  - Pain [None]
